FAERS Safety Report 15317747 (Version 6)
Quarter: 2020Q1

REPORT INFORMATION
  Report Type: Spontaneous
  Country: US (occurrence: US)
  Receive Date: 20180824
  Receipt Date: 20200102
  Transmission Date: 20200409
  Serious: No
  Sender: FDA-Public Use
  Company Number: US-VIFOR (INTERNATIONAL) INC.-VIT-2018-08326

PATIENT
  Sex: Female
  Weight: 99.88 kg

DRUGS (9)
  1. LANTUS SOLOSTAR [Concomitant]
     Active Substance: INSULIN GLARGINE
  2. VELTASSA [Suspect]
     Active Substance: PATIROMER
     Indication: HYPERKALAEMIA
     Route: 065
  3. VELTASSA [Suspect]
     Active Substance: PATIROMER
     Route: 048
     Dates: start: 20180824
  4. ASPIRIN. [Concomitant]
     Active Substance: ASPIRIN
  5. SIMBRINZA [Concomitant]
     Active Substance: BRIMONIDINE TARTRATE\BRINZOLAMIDE
  6. TRAVATAN Z [Concomitant]
     Active Substance: TRAVOPROST
  7. METOPROLOL SUCCINATE. [Concomitant]
     Active Substance: METOPROLOL SUCCINATE
  8. ROCALTROL [Concomitant]
     Active Substance: CALCITRIOL
  9. MIRALAX [Concomitant]
     Active Substance: POLYETHYLENE GLYCOL 3350

REACTIONS (6)
  - Constipation [Recovered/Resolved]
  - Adverse drug reaction [Unknown]
  - Abdominal discomfort [Unknown]
  - Flatulence [Unknown]
  - Abdominal pain upper [Recovered/Resolved]
  - Bowel movement irregularity [Unknown]

NARRATIVE: CASE EVENT DATE: 2018
